FAERS Safety Report 12924226 (Version 3)
Quarter: 2016Q4

REPORT INFORMATION
  Report Type: Report from Study
  Country: US (occurrence: US)
  Receive Date: 20161108
  Receipt Date: 20161205
  Transmission Date: 20170207
  Serious: Yes (Hospitalization, Other)
  Sender: FDA-Public Use
  Company Number: US-JNJFOC-20151121435

PATIENT
  Age: 63 Year
  Sex: Male

DRUGS (12)
  1. TRAMADOL. [Concomitant]
     Active Substance: TRAMADOL
  2. ELIQUIS [Concomitant]
     Active Substance: APIXABAN
  3. DETROL [Concomitant]
     Active Substance: TOLTERODINE TARTRATE
  4. CLONAZEPAM. [Concomitant]
     Active Substance: CLONAZEPAM
  5. LASIX [Concomitant]
     Active Substance: FUROSEMIDE
  6. IMBRUVICA [Suspect]
     Active Substance: IBRUTINIB
     Indication: CHRONIC LYMPHOCYTIC LEUKAEMIA
     Route: 048
     Dates: start: 20151017, end: 2016
  7. IMBRUVICA [Suspect]
     Active Substance: IBRUTINIB
     Indication: CHRONIC LYMPHOCYTIC LEUKAEMIA
     Dosage: SWITCHED BACK AND FORTH FROM THREE TO TWO CAPSULES
     Route: 048
     Dates: start: 2016
  8. OXYBUTIN [Concomitant]
     Active Substance: OXYBUTYNIN
  9. NORCO [Concomitant]
     Active Substance: ACETAMINOPHEN\HYDROCODONE BITARTRATE
  10. KLONOPIN [Concomitant]
     Active Substance: CLONAZEPAM
  11. POTASSIUM [Concomitant]
     Active Substance: POTASSIUM
  12. HYDROCODONE [Concomitant]
     Active Substance: HYDROCODONE

REACTIONS (16)
  - Incorrect dose administered [Not Recovered/Not Resolved]
  - Thrombosis [Unknown]
  - Haemoglobin decreased [Unknown]
  - Headache [Not Recovered/Not Resolved]
  - Oral herpes [Unknown]
  - Fatigue [Not Recovered/Not Resolved]
  - Dizziness [Not Recovered/Not Resolved]
  - Decreased appetite [Unknown]
  - Pyrexia [Unknown]
  - Hypersomnia [Unknown]
  - Diarrhoea [Unknown]
  - Off label use [Not Recovered/Not Resolved]
  - Cellulitis [Unknown]
  - Constipation [Unknown]
  - Balance disorder [Unknown]
  - White blood cell count increased [Not Recovered/Not Resolved]

NARRATIVE: CASE EVENT DATE: 20151016
